FAERS Safety Report 15570170 (Version 1)
Quarter: 2018Q4

REPORT INFORMATION
  Report Type: Spontaneous
  Country: US (occurrence: US)
  Receive Date: 20181031
  Receipt Date: 20181031
  Transmission Date: 20190205
  Serious: No
  Sender: FDA-Public Use
  Company Number: US-NEPHRON PHARMACEUTICALS CORPORATION-2058261

PATIENT
  Age: 8 Year
  Sex: Male
  Weight: 24.55 kg

DRUGS (1)
  1. ALBUTEROL SULFATE INHALATION SOLUTION, 0.042% [Suspect]
     Active Substance: ALBUTEROL SULFATE
     Indication: BRONCHITIS VIRAL
     Route: 055

REACTIONS (1)
  - Epistaxis [Recovered/Resolved]

NARRATIVE: CASE EVENT DATE: 20181024
